FAERS Safety Report 14786610 (Version 1)
Quarter: 2018Q2

REPORT INFORMATION
  Report Type: Spontaneous
  Country: US (occurrence: US)
  Receive Date: 20180420
  Receipt Date: 20180420
  Transmission Date: 20180711
  Serious: No
  Sender: FDA-Public Use
  Company Number: US-SA-2018SA078990

PATIENT
  Age: 52 Year
  Sex: Female

DRUGS (3)
  1. METHOTREXATE. [Concomitant]
     Active Substance: METHOTREXATE
     Route: 048
     Dates: start: 201409, end: 201412
  2. METHOTREXATE. [Concomitant]
     Active Substance: METHOTREXATE
     Route: 065
     Dates: start: 201412, end: 201802
  3. KEVZARA [Suspect]
     Active Substance: SARILUMAB
     Route: 058
     Dates: start: 201802, end: 201802

REACTIONS (2)
  - Pain [Unknown]
  - Disease progression [Unknown]
